FAERS Safety Report 4284821-4 (Version None)
Quarter: 2004Q1

REPORT INFORMATION
  Report Type: 
  Country: None (occurrence: None)
  Receive Date: 20040203
  Receipt Date: 20040203
  Transmission Date: 20041129
  Serious: Yes (Life-Threatening, Hospitalization)
  Sender: FDA-Public Use
  Company Number: None

PATIENT
  Age: 44 Year
  Sex: Male
  Weight: 73.9363 kg

DRUGS (12)
  1. DURAGESIC [Suspect]
     Indication: BACK PAIN
     Dates: start: 20000101, end: 20040120
  2. SEROQUEL [Concomitant]
  3. PRAVACHOL [Concomitant]
  4. NORFLEX [Concomitant]
  5. PERCOCET [Concomitant]
  6. VICODIN HP [Concomitant]
  7. NOVOLOG [Concomitant]
  8. ZYRTEC-D 12 HOUR [Concomitant]
  9. CELEXA [Concomitant]
  10. REMERON [Concomitant]
  11. ADVAIR DISKUS 100/50 [Concomitant]
  12. ALBUTEROL [Concomitant]

REACTIONS (3)
  - CONVULSION [None]
  - DRUG INTERACTION [None]
  - HYPOGLYCAEMIA [None]
